FAERS Safety Report 7672331-3 (Version None)
Quarter: 2011Q3

REPORT INFORMATION
  Report Type: 
  Country: None (occurrence: None)
  Receive Date: 20110809
  Receipt Date: 20110804
  Transmission Date: 20111222
  Serious: Yes (Other)
  Sender: FDA-Public Use
  Company Number: SE-PFIZER INC-2011136805

PATIENT
  Age: 33 Year
  Sex: Female
  Weight: 58 kg

DRUGS (1)
  1. TRAZODONE HCL [Suspect]
     Indication: ANXIETY
     Dosage: 37.5 MG, 1X/DAY
     Route: 048
     Dates: start: 20110617, end: 20110619

REACTIONS (4)
  - PSYCHOMOTOR HYPERACTIVITY [None]
  - BURNING SENSATION [None]
  - OCULAR HYPERAEMIA [None]
  - MYDRIASIS [None]
